FAERS Safety Report 4870270-4 (Version None)
Quarter: 2005Q4

REPORT INFORMATION
  Report Type: 
  Country: None (occurrence: None)
  Receive Date: 20051228
  Receipt Date: 20051213
  Transmission Date: 20060501
  Serious: Yes (Life-Threatening)
  Sender: FDA-Public Use
  Company Number: JP200512002386

PATIENT
  Age: 65 Year
  Sex: Female

DRUGS (5)
  1. EVISTA [Suspect]
     Indication: OSTEOPOROSIS
     Dosage: 60 MG, DAILY (1/D), ORAL
     Route: 048
     Dates: start: 20051130, end: 20051130
  2. ALFAROL (ALFACALCIDOL) [Concomitant]
  3. NORVASC [Concomitant]
  4. LANSOPRAZOLE [Concomitant]
  5. CARVEDILOL [Concomitant]

REACTIONS (3)
  - DEEP VEIN THROMBOSIS [None]
  - OEDEMA PERIPHERAL [None]
  - SENSATION OF PRESSURE [None]
